FAERS Safety Report 8989338 (Version 3)
Quarter: 2013Q1

REPORT INFORMATION
  Report Type: Spontaneous
  Country: US (occurrence: US)
  Receive Date: 20121227
  Receipt Date: 20130207
  Transmission Date: 20140127
  Serious: Yes (Hospitalization, Other)
  Sender: FDA-Public Use
  Company Number: US-BAXTER-2012BAX028442

PATIENT
  Sex: Female

DRUGS (2)
  1. DIANEAL LOW CALCIUM [Suspect]
     Indication: PERITONEAL DIALYSIS
     Route: 033
  2. DIANEAL LOW CALCIUM [Suspect]
     Indication: PERITONEAL DIALYSIS
     Route: 033

REACTIONS (5)
  - Calciphylaxis [Not Recovered/Not Resolved]
  - Hyperparathyroidism [Recovering/Resolving]
  - Post procedural swelling [Recovering/Resolving]
  - Dysphagia [Recovering/Resolving]
  - Post procedural complication [Recovering/Resolving]
